FAERS Safety Report 6866719-8 (Version None)
Quarter: 2010Q2

REPORT INFORMATION
  Report Type: 
  Country: None (occurrence: None)
  Receive Date: 20100610
  Receipt Date: 20100223
  Transmission Date: 20101027
  Serious: No
  Sender: FDA-Public Use
  Company Number: 2010SP012546

PATIENT
  Age: 16 Year
  Sex: Male

DRUGS (1)
  1. SAPHRIS [Suspect]
     Indication: DRUG USE FOR UNKNOWN INDICATION
     Dosage: 10 MG;HS;

REACTIONS (3)
  - DIZZINESS [None]
  - HEART RATE IRREGULAR [None]
  - MEDICATION ERROR [None]
